FAERS Safety Report 8129255-7 (Version None)
Quarter: 2012Q1

REPORT INFORMATION
  Report Type: 
  Country: None (occurrence: None)
  Receive Date: 20120210
  Receipt Date: 20111123
  Transmission Date: 20120608
  Serious: No
  Sender: FDA-Public Use
  Company Number: US-BRISTOL-MYERS SQUIBB COMPANY-16245177

PATIENT
  Sex: Female

DRUGS (2)
  1. ORENCIA [Suspect]
     Dosage: FIRST INFUSION 2 WEEKS AGO
     Dates: start: 20111101
  2. IMURAN [Suspect]

REACTIONS (2)
  - MUSCULAR WEAKNESS [None]
  - ALOPECIA [None]
